FAERS Safety Report 11764755 (Version 1)
Quarter: 2015Q4

REPORT INFORMATION
  Report Type: Spontaneous
  Country: US (occurrence: US)
  Receive Date: 20151120
  Receipt Date: 20151120
  Transmission Date: 20160304
  Serious: No
  Sender: FDA-Public Use
  Company Number: US-ELI_LILLY_AND_COMPANY-US201307001350

PATIENT
  Age: 74 Year
  Sex: Female

DRUGS (4)
  1. NEURONTIN [Concomitant]
     Active Substance: GABAPENTIN
     Dosage: UNK, EVERY 8 HRS
  2. FORTEO [Suspect]
     Active Substance: TERIPARATIDE
     Indication: OSTEOPOROSIS
     Dosage: UNK, QD
     Dates: start: 20130520
  3. DIAZEPAM. [Concomitant]
     Active Substance: DIAZEPAM
  4. OXYCODONE [Concomitant]
     Active Substance: OXYCODONE

REACTIONS (4)
  - Pain [Not Recovered/Not Resolved]
  - Herpes zoster [Unknown]
  - Immunodeficiency [Unknown]
  - Back pain [Unknown]

NARRATIVE: CASE EVENT DATE: 201306
